FAERS Safety Report 9695407 (Version 1)
Quarter: 2013Q4

REPORT INFORMATION
  Report Type: Spontaneous
  Country: IT (occurrence: IT)
  Receive Date: 20131119
  Receipt Date: 20131119
  Transmission Date: 20140711
  Serious: Yes (Other)
  Sender: FDA-Public Use
  Company Number: IT-JNJFOC-20131106940

PATIENT
  Sex: Female

DRUGS (5)
  1. TOPIRAMATE [Suspect]
     Indication: STATUS EPILEPTICUS
     Route: 048
  2. CARBAMAZEPINE [Suspect]
     Indication: STATUS EPILEPTICUS
     Route: 065
  3. PHENOBARBITAL [Suspect]
     Indication: STATUS EPILEPTICUS
     Route: 065
  4. ZONISAMIDE [Suspect]
     Indication: STATUS EPILEPTICUS
     Route: 065
  5. CLONAZEPAM [Suspect]
     Indication: STATUS EPILEPTICUS
     Route: 065

REACTIONS (1)
  - Status epilepticus [Unknown]
